FAERS Safety Report 14205286 (Version 4)
Quarter: 2018Q1

REPORT INFORMATION
  Report Type: Report from Study
  Country: IE (occurrence: IE)
  Receive Date: 20171120
  Receipt Date: 20180115
  Transmission Date: 20180508
  Serious: Yes (Hospitalization, Other)
  Sender: FDA-Public Use
  Company Number: IE-JNJFOC-20171118927

PATIENT
  Age: 65 Year
  Sex: Male

DRUGS (7)
  1. GALFER [Concomitant]
     Active Substance: IRON
     Route: 050
  2. ALDACTONE [Concomitant]
     Active Substance: SPIRONOLACTONE
     Route: 050
  3. QUININE SULPHATE [Concomitant]
     Active Substance: QUININE SULFATE
     Route: 050
  4. FUROSEMIDE. [Concomitant]
     Active Substance: FUROSEMIDE
     Route: 050
  5. STELARA [Suspect]
     Active Substance: USTEKINUMAB
     Indication: PRODUCT USED FOR UNKNOWN INDICATION
     Route: 058
     Dates: start: 20170531
  6. INDERAL [Concomitant]
     Active Substance: PROPRANOLOL HYDROCHLORIDE
     Route: 050
  7. ZOLPIDEM [Concomitant]
     Active Substance: ZOLPIDEM\ZOLPIDEM TARTRATE
     Route: 050

REACTIONS (4)
  - Lower respiratory tract infection [Recovered/Resolved]
  - Sepsis [Not Recovered/Not Resolved]
  - Influenza [Unknown]
  - Peripheral swelling [Not Recovered/Not Resolved]

NARRATIVE: CASE EVENT DATE: 20171212
